FAERS Safety Report 5186482-9 (Version None)
Quarter: 2006Q4

REPORT INFORMATION
  Report Type: 
  Country: None (occurrence: None)
  Receive Date: 20061220
  Receipt Date: 20061024
  Transmission Date: 20070319
  Serious: Yes (Other)
  Sender: FDA-Public Use
  Company Number: FR-BOEHRINGER INGELHEIM PHARMACEUTICALS, INC.-2006-FF-01159FF

PATIENT
  Sex: Female
  Weight: 38 kg

DRUGS (6)
  1. SPIRIVA [Suspect]
     Route: 055
     Dates: start: 20061019, end: 20061020
  2. SEREVENT [Suspect]
     Route: 055
  3. ISOPTIN [Concomitant]
  4. FLECAINIDE ACETATE [Concomitant]
  5. ASPIRIN [Concomitant]
  6. VENTOLIN [Concomitant]

REACTIONS (4)
  - APNOEA [None]
  - HEADACHE [None]
  - HEART RATE INCREASED [None]
  - VISION BLURRED [None]
